FAERS Safety Report 12956143 (Version 1)
Quarter: 2016Q4

REPORT INFORMATION
  Report Type: Spontaneous
  Country: US (occurrence: US)
  Receive Date: 20161118
  Receipt Date: 20161118
  Transmission Date: 20170207
  Serious: No
  Sender: FDA-Public Use
  Company Number: US-JNJFOC-20161019076

PATIENT
  Age: 66 Year
  Sex: Female
  Weight: 83.92 kg

DRUGS (1)
  1. TYLENOL EXTRA STRENGTH [Suspect]
     Active Substance: ACETAMINOPHEN
     Indication: FEELING ABNORMAL
     Dosage: ON 19-OCT-2016, PATIENT TOOK TWO TABLETS AND ON 20-OCT-2016 WHEN CONSUMER ONLY TOOK ONE TABLET.
     Route: 048
     Dates: start: 20161019, end: 20161020

REACTIONS (2)
  - Product odour abnormal [Unknown]
  - Product use issue [Unknown]

NARRATIVE: CASE EVENT DATE: 20161019
